FAERS Safety Report 19417460 (Version 1)
Quarter: 2021Q2

REPORT INFORMATION
  Report Type: Spontaneous
  Country: US (occurrence: US)
  Receive Date: 20210615
  Receipt Date: 20210615
  Transmission Date: 20210717
  Serious: No
  Sender: FDA-Public Use
  Company Number: None

PATIENT
  Sex: Female

DRUGS (16)
  1. LOSARTAN. [Concomitant]
     Active Substance: LOSARTAN
  2. METOPROLOL. [Concomitant]
     Active Substance: METOPROLOL
  3. TOUJEO [Concomitant]
     Active Substance: INSULIN GLARGINE
  4. PRAVASTATIN. [Concomitant]
     Active Substance: PRAVASTATIN
  5. ARNUITY ELLIPTA [Concomitant]
     Active Substance: FLUTICASONE FUROATE
  6. FASENRA [Concomitant]
     Active Substance: BENRALIZUMAB
  7. VITAMIN B COMPLEX [Concomitant]
     Active Substance: CYANOCOBALAMIN\DEXPANTHENOL\NIACINAMIDE\PYRIDOXINE HYDROCHLORIDE\RIBOFLAVIN 5^-PHOSPHATE SODIUM\THIAMINE HYDROCHLORIDE\VITAMIN B COMPLEX
  8. FUROSEMIDE. [Concomitant]
     Active Substance: FUROSEMIDE
  9. NASONEX [Concomitant]
     Active Substance: MOMETASONE FUROATE
  10. WARFARIN [Concomitant]
     Active Substance: WARFARIN
  11. NOVOLOG [Concomitant]
     Active Substance: INSULIN ASPART
  12. DOFETILIDE. [Suspect]
     Active Substance: DOFETILIDE
     Indication: ATRIAL FIBRILLATION
     Route: 048
     Dates: start: 20180901
  13. DESVENLAFAXINE. [Concomitant]
     Active Substance: DESVENLAFAXINE
  14. GLUCOSAMINE [Concomitant]
     Active Substance: GLUCOSAMINE
  15. POTASSIUM [Concomitant]
     Active Substance: POTASSIUM
  16. TRULICITY [Concomitant]
     Active Substance: DULAGLUTIDE

REACTIONS (3)
  - Dyspnoea [None]
  - Chest discomfort [None]
  - Product substitution issue [None]
